FAERS Safety Report 5573590-3 (Version None)
Quarter: 2007Q4

REPORT INFORMATION
  Report Type: 
  Country: None (occurrence: None)
  Receive Date: 20071220
  Receipt Date: 20071205
  Transmission Date: 20080405
  Serious: Yes (Hospitalization)
  Sender: FDA-Public Use
  Company Number: ABX34-06-0344

PATIENT
  Age: 83 Year
  Sex: Female
  Weight: 68.2664 kg

DRUGS (11)
  1. ABRAXANE [Suspect]
     Indication: BREAST CANCER METASTATIC
     Dosage: 216 MG DAY EVERY 21 DAY, INTRAVENOUS DRIP
     Route: 041
     Dates: start: 20060626, end: 20060703
  2. CAPECITABINE (CAPECITABINE) [Suspect]
     Indication: BREAST CANCER METASTATIC
     Dosage: 1000 MG,TWICE A DAY/6-JUL-06 PM DOSE HELD, ORAL
     Route: 048
     Dates: start: 20060626, end: 20060706
  3. ALTACE [Concomitant]
  4. HYDROCHLOROTHIAZIDE [Concomitant]
  5. TRICOR [Concomitant]
  6. HUMULIN (NOVOLIN 20/80) [Concomitant]
  7. AMBIEN [Concomitant]
  8. DILAUDID [Concomitant]
  9. LEVOXYL [Concomitant]
  10. DURAGESIC-100 [Concomitant]
  11. HUMULIN (NOVOLIN 20/80) [Concomitant]

REACTIONS (20)
  - ARRHYTHMIA [None]
  - ASTHENIA [None]
  - BLOOD CULTURE POSITIVE [None]
  - BLOOD GLUCOSE INCREASED [None]
  - BLOOD UREA INCREASED [None]
  - CARDIAC FAILURE CONGESTIVE [None]
  - CONFUSIONAL STATE [None]
  - DEHYDRATION [None]
  - DIARRHOEA [None]
  - HAEMOGLOBIN DECREASED [None]
  - MENTAL STATUS CHANGES [None]
  - MUCOSAL INFLAMMATION [None]
  - NAUSEA [None]
  - NEUTROPENIA [None]
  - NEUTROPENIC SEPSIS [None]
  - ORAL INTAKE REDUCED [None]
  - PLATELET COUNT DECREASED [None]
  - PNEUMONIA KLEBSIELLA [None]
  - WHITE BLOOD CELL COUNT DECREASED [None]
  - WHITE BLOOD CELL COUNT INCREASED [None]
